FAERS Safety Report 11908652 (Version 1)
Quarter: 2016Q1

REPORT INFORMATION
  Report Type: Spontaneous
  Country: US (occurrence: US)
  Receive Date: 20160111
  Receipt Date: 20160111
  Transmission Date: 20160526
  Serious: No
  Sender: FDA-Public Use
  Company Number: US-APOTEX-2015AP009146

PATIENT
  Age: 55 Year
  Sex: Male

DRUGS (5)
  1. KAVA [Interacting]
     Active Substance: PIPER METHYSTICUM ROOT
     Indication: SMOKING CESSATION THERAPY
     Dosage: VARIOUS KAVAIN ROOT POWDER FORMULATIONS MIXED WITH WATER TO MAKE COLD EXTRACT TEA
     Route: 048
  2. LISINOPRIL. [Concomitant]
     Active Substance: LISINOPRIL
     Indication: PRODUCT USED FOR UNKNOWN INDICATION
     Dosage: UNK
     Route: 065
  3. CITALOPRAM [Suspect]
     Active Substance: CITALOPRAM HYDROBROMIDE
     Indication: PRODUCT USED FOR UNKNOWN INDICATION
     Dosage: UNK
     Route: 065
  4. KAVA [Interacting]
     Active Substance: PIPER METHYSTICUM ROOT
     Dosage: KAVAIN CONCENTRATE
     Route: 060
  5. BENZOYL PEROXIDE. [Concomitant]
     Active Substance: BENZOYL PEROXIDE
     Indication: PRODUCT USED FOR UNKNOWN INDICATION
     Dosage: 2.5% BENZOYL PEROXIDE GEL
     Route: 061

REACTIONS (2)
  - Drug interaction [Recovered/Resolved]
  - Rash [Recovered/Resolved]
